FAERS Safety Report 9056431 (Version 2)
Quarter: 2013Q1

REPORT INFORMATION
  Report Type: Spontaneous
  Country: US (occurrence: US)
  Receive Date: 20130204
  Receipt Date: 20130305
  Transmission Date: 20140127
  Serious: Yes (Other)
  Sender: FDA-Public Use
  Company Number: US-ASTRAZENECA-2013SE05792

PATIENT
  Age: 69 Year
  Sex: Female
  Weight: 77.1 kg

DRUGS (9)
  1. NEXIUM [Suspect]
     Indication: GASTROOESOPHAGEAL REFLUX DISEASE
     Route: 048
     Dates: start: 2006
  2. NEXIUM [Suspect]
     Indication: GASTROOESOPHAGEAL REFLUX DISEASE
     Route: 048
  3. NEXIUM [Suspect]
     Indication: GASTROOESOPHAGEAL REFLUX DISEASE
     Route: 048
  4. SULINDAC [Concomitant]
     Indication: ARTHRITIS
     Route: 048
  5. PATADAY EYE DROPS [Concomitant]
     Indication: HYPERSENSITIVITY
     Dosage: 1 GTT EACH EYE, DAILY
  6. LEVOCETIRIZINE [Concomitant]
     Indication: HYPERSENSITIVITY
     Route: 048
  7. AMITRIPTYLINE BESYLATE [Concomitant]
     Indication: IRRITABLE BOWEL SYNDROME
     Route: 048
  8. PREMARIN [Concomitant]
     Indication: HOT FLUSH
  9. ALLERGY SHOT [Concomitant]
     Indication: HYPERSENSITIVITY

REACTIONS (10)
  - Hiatus hernia [Unknown]
  - Gastrooesophageal reflux disease [Unknown]
  - Osteoporosis [Unknown]
  - Blood cholesterol increased [Unknown]
  - Blood triglycerides increased [Unknown]
  - Dyspnoea [Unknown]
  - Cardiac disorder [Unknown]
  - Vitamin B12 decreased [Unknown]
  - Drug ineffective [Unknown]
  - Intentional drug misuse [Unknown]
